FAERS Safety Report 13265362 (Version 1)
Quarter: 2017Q1

REPORT INFORMATION
  Report Type: Spontaneous
  Country: AU (occurrence: AU)
  Receive Date: 20170223
  Receipt Date: 20170223
  Transmission Date: 20170428
  Serious: Yes (Hospitalization)
  Sender: FDA-Public Use
  Company Number: AU-PERRIGO-17AU001608

PATIENT

DRUGS (1)
  1. ACETAMINOPHEN. [Suspect]
     Active Substance: ACETAMINOPHEN
     Indication: PRODUCT USED FOR UNKNOWN INDICATION
     Dosage: 18 G, SINGLE
     Route: 048

REACTIONS (5)
  - Overdose [Unknown]
  - Respiratory depression [Unknown]
  - Atrial flutter [Unknown]
  - Hypotension [Unknown]
  - Coma scale abnormal [Unknown]
